FAERS Safety Report 7923685-1 (Version None)
Quarter: 2011Q4

REPORT INFORMATION
  Report Type: 
  Country: None (occurrence: None)
  Receive Date: 20111117
  Receipt Date: 20110207
  Transmission Date: 20120403
  Serious: No
  Sender: FDA-Public Use
  Company Number: US-AMGEN-USASP2011007107

PATIENT
  Sex: Female

DRUGS (2)
  1. ENBREL [Suspect]
     Indication: PSORIATIC ARTHROPATHY
     Dates: start: 20061001
  2. ENBREL [Suspect]
     Indication: PSORIASIS

REACTIONS (3)
  - OEDEMA PERIPHERAL [None]
  - MOBILITY DECREASED [None]
  - DRUG DOSE OMISSION [None]
